FAERS Safety Report 16105924 (Version 1)
Quarter: 2019Q1

REPORT INFORMATION
  Report Type: Spontaneous
  Country: US (occurrence: US)
  Receive Date: 20190322
  Receipt Date: 20190322
  Transmission Date: 20190418
  Serious: No
  Sender: FDA-Public Use
  Company Number: US-TEVA-2019-US-1025112

PATIENT
  Sex: Female

DRUGS (1)
  1. AMOXICILLIN AND CLAVULANATE POTASSIUM TABLET TEVA [Suspect]
     Active Substance: AMOXICILLIN\CLAVULANATE POTASSIUM
     Indication: SURGERY
     Dosage: FORM STRENGTH: AMOXICILLIN 875 MG AND CLAVULANATE 125 MG.
     Route: 065

REACTIONS (2)
  - Rash generalised [Unknown]
  - Scratch [Not Recovered/Not Resolved]
